FAERS Safety Report 14338539 (Version 1)
Quarter: 2017Q4

REPORT INFORMATION
  Report Type: Spontaneous
  Country: FR (occurrence: FR)
  Receive Date: 20171229
  Receipt Date: 20171229
  Transmission Date: 20180321
  Serious: Yes (Life-Threatening)
  Sender: FDA-Public Use
  Company Number: FR-TEVA-2017-FR-838112

PATIENT
  Age: 55 Year
  Sex: Male

DRUGS (2)
  1. PARACETAMOL [Suspect]
     Active Substance: ACETAMINOPHEN
     Indication: JOINT EFFUSION
     Dosage: NOT SPECIFIED
     Route: 048
     Dates: start: 20171125, end: 20171129
  2. KETOPROFEN. [Suspect]
     Active Substance: KETOPROFEN
     Indication: JOINT EFFUSION
     Route: 048
     Dates: start: 20171125, end: 20171129

REACTIONS (1)
  - Necrotising fasciitis [Recovered/Resolved with Sequelae]

NARRATIVE: CASE EVENT DATE: 20171129
